FAERS Safety Report 10364114 (Version 8)
Quarter: 2016Q3

REPORT INFORMATION
  Report Type: Spontaneous
  Country: CA (occurrence: CA)
  Receive Date: 20140806
  Receipt Date: 20160829
  Transmission Date: 20161109
  Serious: Yes (Hospitalization, Other)
  Sender: FDA-Public Use
  Company Number: CA-ROCHE-1445366

PATIENT
  Age: 54 Year
  Sex: Female

DRUGS (7)
  1. VENTOLIN [Concomitant]
     Active Substance: ALBUTEROL SULFATE
  2. XOLAIR [Suspect]
     Active Substance: OMALIZUMAB
     Route: 058
     Dates: start: 20151223
  3. GUAIFENESIN. [Concomitant]
     Active Substance: GUAIFENESIN
  4. XOLAIR [Suspect]
     Active Substance: OMALIZUMAB
     Route: 058
     Dates: start: 20160810
  5. SYMBICORT [Concomitant]
     Active Substance: BUDESONIDE\FORMOTEROL FUMARATE DIHYDRATE
     Dosage: 200/6 OT
     Route: 065
  6. XOLAIR [Suspect]
     Active Substance: OMALIZUMAB
     Indication: ASTHMA
     Route: 058
     Dates: start: 20131031
  7. XOLAIR [Suspect]
     Active Substance: OMALIZUMAB
     Route: 058
     Dates: start: 20160303

REACTIONS (14)
  - Respiratory tract infection [Recovering/Resolving]
  - Fall [Unknown]
  - Ankle fracture [Unknown]
  - Lymphadenopathy [Unknown]
  - Nasal oedema [Unknown]
  - Atelectasis [Unknown]
  - Cough [Unknown]
  - Tendonitis [Unknown]
  - Acute sinusitis [Unknown]
  - Blood pressure increased [Unknown]
  - Nasal polyps [Unknown]
  - Asthma [Unknown]
  - Productive cough [Unknown]
  - Bronchitis [Unknown]

NARRATIVE: CASE EVENT DATE: 201406
